FAERS Safety Report 15093376 (Version 1)
Quarter: 2018Q2

REPORT INFORMATION
  Report Type: Spontaneous
  Country: US (occurrence: US)
  Receive Date: 20180629
  Receipt Date: 20180629
  Transmission Date: 20180711
  Serious: Yes (Other)
  Sender: FDA-Public Use
  Company Number: US-OTSUKA-2018_017067

PATIENT

DRUGS (1)
  1. ABILIFY [Suspect]
     Active Substance: ARIPIPRAZOLE
     Indication: PRODUCT USED FOR UNKNOWN INDICATION
     Dosage: UNK
     Route: 065
     Dates: start: 2010, end: 2015

REACTIONS (7)
  - Mental impairment [Unknown]
  - Emotional distress [Unknown]
  - Social problem [Unknown]
  - Disability [Unknown]
  - Injury [Unknown]
  - Anhedonia [Unknown]
  - Economic problem [Unknown]
